FAERS Safety Report 5679016-3 (Version None)
Quarter: 2008Q1

REPORT INFORMATION
  Report Type: 
  Country: None (occurrence: None)
  Receive Date: 20080325
  Receipt Date: 20080320
  Transmission Date: 20080703
  Serious: Yes (Other)
  Sender: FDA-Public Use
  Company Number: GB-BRISTOL-MYERS SQUIBB COMPANY-14121487

PATIENT
  Sex: Female

DRUGS (3)
  1. EFAVIRENZ [Suspect]
     Indication: RETROVIRAL INFECTION
     Route: 048
  2. COMBIVIR [Interacting]
     Indication: RETROVIRAL INFECTION
     Dosage: 1 DOSAGEFORM = ZIDOVUDINE 300 MG + LAMIVUDINE 150 MG
     Route: 048
  3. IMPLANON [Interacting]
     Indication: CONTRACEPTION
     Route: 058
     Dates: start: 20060101

REACTIONS (2)
  - DRUG INTERACTION [None]
  - PREGNANCY [None]
